FAERS Safety Report 9530169 (Version 4)
Quarter: 2013Q4

REPORT INFORMATION
  Report Type: Spontaneous
  Country: US (occurrence: US)
  Receive Date: 20130917
  Receipt Date: 20131223
  Transmission Date: 20140711
  Serious: Yes (Other)
  Sender: FDA-Public Use
  Company Number: US-009507513-1309USA007473

PATIENT
  Age: 51 Year
  Sex: Male

DRUGS (15)
  1. PEG-INTRON [Suspect]
     Indication: HEPATITIS C
     Dosage: 120 MICRO, QW
     Route: 058
     Dates: start: 20120401, end: 20120501
  2. PEG-INTRON [Suspect]
     Dosage: REDIPEN
     Dates: start: 20130720, end: 20131016
  3. REBETOL [Suspect]
     Indication: HEPATITIS C
     Dosage: UNK
     Dates: start: 20120401, end: 20120501
  4. REBETOL [Suspect]
     Dosage: UNK
     Route: 048
     Dates: start: 20130720, end: 20131016
  5. VICTRELIS [Suspect]
     Indication: HEPATITIS C
     Dosage: 800 MG, TID
     Route: 048
     Dates: start: 20130720, end: 20131021
  6. VICTRELIS [Suspect]
     Dosage: UNK
     Route: 048
     Dates: start: 20130819
  7. INCIVEK [Suspect]
     Indication: HEPATITIS C
     Dosage: UNK
     Dates: start: 20120401, end: 20120501
  8. PRILOSEC [Concomitant]
  9. GABAPENTIN [Concomitant]
  10. CYCLOBENZAPRINE HYDROCHLORIDE [Concomitant]
  11. FLEXERIL [Concomitant]
  12. VICODIN [Concomitant]
  13. CITALOPRAM [Concomitant]
  14. ONDANSETRON HYDROCHLORIDE [Concomitant]
  15. HYDROCODONE [Concomitant]

REACTIONS (27)
  - Convulsion [Unknown]
  - Convulsion [Recovering/Resolving]
  - Dry eye [Unknown]
  - Dry eye [Unknown]
  - Dry eye [Recovering/Resolving]
  - Vision blurred [Unknown]
  - Somnolence [Unknown]
  - Thirst [Unknown]
  - Headache [Unknown]
  - Nausea [Recovered/Resolved]
  - Fatigue [Recovering/Resolving]
  - Dry mouth [Unknown]
  - Vomiting [Recovered/Resolved]
  - Vomiting [Recovering/Resolving]
  - Vomiting [Recovering/Resolving]
  - Drug ineffective [Unknown]
  - Drug ineffective [Unknown]
  - No therapeutic response [Unknown]
  - No therapeutic response [Unknown]
  - Drug dose omission [Unknown]
  - Drug dose omission [Unknown]
  - Hallucination [Recovering/Resolving]
  - Anal pruritus [Recovering/Resolving]
  - Depressed mood [Recovering/Resolving]
  - Eczema asteatotic [Recovering/Resolving]
  - Weight increased [Recovering/Resolving]
  - Alopecia [Unknown]
